FAERS Safety Report 4553843-8 (Version None)
Quarter: 2005Q1

REPORT INFORMATION
  Report Type: 
  Country: None (occurrence: None)
  Receive Date: 20050110
  Receipt Date: 20050110
  Transmission Date: 20050727
  Serious: Yes (Other)
  Sender: FDA-Public Use
  Company Number: None

PATIENT
  Age: 44 Year
  Sex: Female
  Weight: 67.1324 kg

DRUGS (4)
  1. VIOXX [Suspect]
     Indication: INTERVERTEBRAL DISC PROTRUSION
     Dosage: 1 TAB   ONCE DAILY   ORAL
     Route: 048
     Dates: start: 20020705, end: 20040928
  2. VIOXX [Suspect]
     Indication: PAIN
     Dosage: 1 TAB   ONCE DAILY   ORAL
     Route: 048
     Dates: start: 20020705, end: 20040928
  3. VIOXX [Suspect]
     Indication: SURGERY
     Dosage: 1 TAB   ONCE DAILY   ORAL
     Route: 048
     Dates: start: 20020705, end: 20040928
  4. VIOXX [Suspect]
     Indication: SWELLING
     Dosage: 1 TAB   ONCE DAILY   ORAL
     Route: 048
     Dates: start: 20020705, end: 20040928

REACTIONS (4)
  - ASTHENIA [None]
  - BLOOD PRESSURE INCREASED [None]
  - FEELING ABNORMAL [None]
  - PAIN [None]
